FAERS Safety Report 9264903 (Version 1)
Quarter: 2013Q2

REPORT INFORMATION
  Report Type: Spontaneous
  Country: US (occurrence: US)
  Receive Date: 20130501
  Receipt Date: 20130501
  Transmission Date: 20140414
  Serious: Yes (Other)
  Sender: FDA-Public Use
  Company Number: US-SANOFI-AVENTIS-2013SA043633

PATIENT
  Age: 62 Year
  Sex: Female

DRUGS (4)
  1. LANTUS SOLOSTAR [Suspect]
     Indication: TYPE 2 DIABETES MELLITUS
     Dosage: DOSE:64 UNIT(S)
     Route: 058
  2. SOLOSTAR [Suspect]
     Indication: TYPE 2 DIABETES MELLITUS
  3. JANUVIA [Concomitant]
  4. METFORMIN [Concomitant]

REACTIONS (4)
  - Femur fracture [Not Recovered/Not Resolved]
  - Peroneal nerve palsy [Not Recovered/Not Resolved]
  - Anxiety [Not Recovered/Not Resolved]
  - Blood glucose increased [Not Recovered/Not Resolved]
